FAERS Safety Report 8121111-3 (Version None)
Quarter: 2012Q1

REPORT INFORMATION
  Report Type: 
  Country: None (occurrence: None)
  Receive Date: 20120208
  Receipt Date: 20120206
  Transmission Date: 20120608
  Serious: Yes (Death)
  Sender: FDA-Public Use
  Company Number: BR-BRISTOL-MYERS SQUIBB COMPANY-16042392

PATIENT
  Age: 78 Year
  Sex: Male

DRUGS (1)
  1. IRBESARTAN + HYDROCHLOROTHIAZIDE [Suspect]
     Indication: HYPERTENSION
     Dosage: 1DF = 300/12.5MG/TABS.

REACTIONS (4)
  - METASTASES TO BONE [None]
  - PROSTATE CANCER [None]
  - METASTASES TO LUNG [None]
  - METASTASES TO CENTRAL NERVOUS SYSTEM [None]
